FAERS Safety Report 11902927 (Version 1)
Quarter: 2016Q1

REPORT INFORMATION
  Report Type: Spontaneous
  Country: US (occurrence: US)
  Receive Date: 20160108
  Receipt Date: 20160108
  Transmission Date: 20160526
  Serious: No
  Sender: FDA-Public Use
  Company Number: US-ABBVIE-15P-163-1498340-00

PATIENT
  Age: 24 Year
  Sex: Male

DRUGS (2)
  1. RIBAVIRIN. [Suspect]
     Active Substance: RIBAVIRIN
     Indication: CHRONIC HEPATITIS C
     Route: 048
     Dates: start: 20150910
  2. VIEKIRA PAK [Suspect]
     Active Substance: DASABUVIR\OMBITASVIR\PARITAPREVIR\RITONAVIR
     Indication: CHRONIC HEPATITIS C
     Route: 048
     Dates: start: 20150910

REACTIONS (6)
  - Rhinorrhoea [Not Recovered/Not Resolved]
  - Headache [Not Recovered/Not Resolved]
  - Chest pain [Not Recovered/Not Resolved]
  - Oropharyngeal pain [Not Recovered/Not Resolved]
  - Throat irritation [Not Recovered/Not Resolved]
  - Nasal congestion [Not Recovered/Not Resolved]

NARRATIVE: CASE EVENT DATE: 20151107
